FAERS Safety Report 14378043 (Version 4)
Quarter: 2018Q2

REPORT INFORMATION
  Report Type: Report from Study
  Country: FR (occurrence: FR)
  Receive Date: 20180111
  Receipt Date: 20180630
  Transmission Date: 20180711
  Serious: Yes (Hospitalization, Other)
  Sender: FDA-Public Use
  Company Number: FR-TEVA-2018-FR-845780

PATIENT
  Age: 15 Year
  Sex: Male

DRUGS (9)
  1. METHOTREXATE. [Suspect]
     Active Substance: METHOTREXATE
     Indication: ACUTE LYMPHOCYTIC LEUKAEMIA
     Dosage: 15 MILLIGRAM DAILY; 15 MG, 1X/DAY:QD
     Route: 037
     Dates: start: 20171111, end: 20171111
  2. ARACYTINE [Suspect]
     Active Substance: CYTARABINE
     Dosage: 6100 MILLIGRAM DAILY; 6100 MG, 1X/DAY:QD
     Route: 042
     Dates: start: 20171107, end: 20171107
  3. ETOPOSIDE. [Suspect]
     Active Substance: ETOPOSIDE
     Indication: ACUTE LYMPHOCYTIC LEUKAEMIA
     Dosage: 230 MILLIGRAM DAILY; 230 MG, 1X/DAY:QD
     Route: 042
     Dates: start: 20171109, end: 20171110
  4. HYDROCORTISONE. [Suspect]
     Active Substance: HYDROCORTISONE
     Indication: ACUTE LYMPHOCYTIC LEUKAEMIA
     Dosage: 15 MILLIGRAM DAILY; 15 MG, 1X/DAY:QD
     Route: 037
     Dates: start: 20171111, end: 20171111
  5. MITOXANTRONE [Suspect]
     Active Substance: MITOXANTRONE HYDROCHLORIDE
     Indication: ACUTE LYMPHOCYTIC LEUKAEMIA
     Dosage: 12 MILLIGRAM DAILY; 12 MG, 1X/DAY:QD
     Route: 042
     Dates: start: 20171109, end: 20171110
  6. ARACYTINE [Suspect]
     Active Substance: CYTARABINE
     Indication: ACUTE LYMPHOCYTIC LEUKAEMIA
     Dosage: 30 MG, UNK
     Route: 065
     Dates: start: 20171111, end: 20171111
  7. BACTRIM [Concomitant]
     Active Substance: SULFAMETHOXAZOLE\TRIMETHOPRIM
     Indication: INFECTION PROPHYLAXIS
  8. PEGASPARGASE [Suspect]
     Active Substance: PEGASPARGASE
     Indication: ACUTE LYMPHOCYTIC LEUKAEMIA
     Dosage: 3750 IU, 1X/DAY:QD
     Route: 042
     Dates: start: 20171112, end: 20171112
  9. DEXAMETHASONE. [Suspect]
     Active Substance: DEXAMETHASONE
     Indication: ACUTE LYMPHOCYTIC LEUKAEMIA
     Dosage: 30 MILLIGRAM DAILY; 30 MG, 1X/DAY:QD
     Route: 048
     Dates: start: 20171109, end: 20171112

REACTIONS (2)
  - Cholangitis infective [Recovered/Resolved]
  - Subileus [Recovered/Resolved]

NARRATIVE: CASE EVENT DATE: 20171120
